FAERS Safety Report 4459527-9 (Version None)
Quarter: 2004Q3

REPORT INFORMATION
  Report Type: 
  Country: None (occurrence: None)
  Receive Date: 20040910
  Receipt Date: 20040616
  Transmission Date: 20050211
  Serious: No
  Sender: FDA-Public Use
  Company Number: 2004219423US

PATIENT
  Age: 83 Year
  Sex: Female

DRUGS (1)
  1. BEXTRA [Suspect]
     Indication: MIGRAINE
     Dosage: 10 MG, QD
     Dates: start: 20040514, end: 20040514

REACTIONS (2)
  - LIP BLISTER [None]
  - PRURITUS [None]
